FAERS Safety Report 10524172 (Version 1)
Quarter: 2014Q4

REPORT INFORMATION
  Report Type: Spontaneous
  Country: US (occurrence: None)
  Receive Date: 20141015
  Receipt Date: 20141015
  Transmission Date: 20150528
  Serious: Yes (Death, Hospitalization, Other)
  Sender: FDA-Public Use
  Company Number: 2014SMT00090

PATIENT
  Age: 47 Year
  Sex: Male
  Weight: 106.6 kg

DRUGS (1)
  1. XENADERM [Suspect]
     Active Substance: BALSAM PERU OIL\CASTOR OIL\TRYPSIN
     Indication: WOUND
     Route: 061
     Dates: start: 201304

REACTIONS (3)
  - Cerebrovascular accident [None]
  - Brain death [None]
  - Dehydration [None]

NARRATIVE: CASE EVENT DATE: 201402
